FAERS Safety Report 6121734-7 (Version None)
Quarter: 2009Q1

REPORT INFORMATION
  Report Type: 
  Country: None (occurrence: None)
  Receive Date: 20090313
  Receipt Date: 20090313
  Transmission Date: 20090719
  Serious: No
  Sender: FDA-Public Use
  Company Number: None

PATIENT
  Sex: Female
  Weight: 122.73 kg

DRUGS (11)
  1. NEURONTIN [Suspect]
     Dosage: 300 MG CAPSULE 300 MG TID ORAL
     Route: 048
     Dates: start: 20090113, end: 20090313
  2. AMLACTIN (AMMONIUM LACTATE) [Concomitant]
  3. ERGOCALCIFEROL [Concomitant]
  4. LIDEX CREAM (FLUOCINONIDE CREAM) [Concomitant]
  5. LIDOCAINE [Concomitant]
  6. NASONEX [Concomitant]
  7. NEXIUM [Concomitant]
  8. ORTHOVISC [Concomitant]
  9. PLAQUENIL [Concomitant]
  10. PROPOXYPHENE HCL CAP [Concomitant]
  11. SALEX (SALICYCLIC ACID SR) [Concomitant]

REACTIONS (1)
  - GASTROINTESTINAL DISORDER [None]
